FAERS Safety Report 9380232 (Version 1)
Quarter: 2013Q3

REPORT INFORMATION
  Report Type: Spontaneous
  Country: US (occurrence: None)
  Receive Date: 20130701
  Receipt Date: 20130701
  Transmission Date: 20140515
  Serious: Yes (Other)
  Sender: FDA-Public Use
  Company Number: None

PATIENT
  Age: 37 Year
  Sex: Female
  Weight: 50.8 kg

DRUGS (1)
  1. SEROQUEL [Suspect]
     Indication: BIPOLAR DISORDER
     Route: 048
     Dates: start: 20081101, end: 20130210

REACTIONS (12)
  - Anxiety [None]
  - Insomnia [None]
  - Fall [None]
  - Personality change [None]
  - Feeling drunk [None]
  - Amnesia [None]
  - Hostility [None]
  - Thinking abnormal [None]
  - Abnormal behaviour [None]
  - Memory impairment [None]
  - Mental impairment [None]
  - Alopecia [None]
